FAERS Safety Report 6911248-6 (Version None)
Quarter: 2010Q3

REPORT INFORMATION
  Report Type: 
  Country: None (occurrence: None)
  Receive Date: 20100719
  Receipt Date: 20090713
  Transmission Date: 20110219
  Serious: Yes (Hospitalization, Other)
  Sender: FDA-Public Use
  Company Number: US-WYE-H10091609

PATIENT
  Age: 46 Year
  Sex: Male

DRUGS (3)
  1. ADVIL [Suspect]
     Indication: INFLUENZA LIKE ILLNESS
     Dosage: ORAL
     Route: 048
  2. ADVIL [Suspect]
     Indication: PAIN
     Dosage: ORAL
     Route: 048
  3. BETASERON [Suspect]
     Indication: MULTIPLE SCLEROSIS
     Dosage: SUBCUTANEOUS
     Route: 058
     Dates: start: 20040624, end: 20090626

REACTIONS (1)
  - GASTROINTESTINAL HAEMORRHAGE [None]
